FAERS Safety Report 23964583 (Version 1)
Quarter: 2024Q2

REPORT INFORMATION
  Report Type: Spontaneous
  Country: JP (occurrence: JP)
  Receive Date: 20240612
  Receipt Date: 20240612
  Transmission Date: 20240716
  Serious: Yes (Other)
  Sender: FDA-Public Use
  Company Number: JP-JNJFOC-20240614855

PATIENT
  Age: 12 Year
  Sex: Male

DRUGS (1)
  1. MIGLUSTAT [Suspect]
     Active Substance: MIGLUSTAT
     Indication: Niemann-Pick disease
     Dosage: DOSE UNKNOWN?MIGLUSTAT:100MG
     Route: 048

REACTIONS (1)
  - Subcutaneous abscess [Unknown]
